FAERS Safety Report 9515798 (Version 3)
Quarter: 2013Q4

REPORT INFORMATION
  Report Type: Spontaneous
  Country: BR (occurrence: BR)
  Receive Date: 20130911
  Receipt Date: 20131029
  Transmission Date: 20140711
  Serious: Yes (Life-Threatening, Hospitalization, Other)
  Sender: FDA-Public Use
  Company Number: BR-ROCHE-1228706

PATIENT
  Sex: Female

DRUGS (1)
  1. RIVOTRIL [Suspect]
     Indication: PRODUCT USED FOR UNKNOWN INDICATION
     Route: 060

REACTIONS (12)
  - Sedation [Unknown]
  - Tachycardia [Unknown]
  - Overdose [Unknown]
  - Confusional state [Unknown]
  - Feeling of despair [Unknown]
  - Tremor [Unknown]
  - Somnolence [Unknown]
  - Apnoea [Unknown]
  - Disturbance in attention [Unknown]
  - Respiratory depression [Unknown]
  - Hypoaesthesia oral [Unknown]
  - Heart rate increased [Unknown]
